FAERS Safety Report 23133775 (Version 1)
Quarter: 2023Q4

REPORT INFORMATION
  Report Type: Spontaneous
  Country: US (occurrence: US)
  Receive Date: 20231101
  Receipt Date: 20231101
  Transmission Date: 20240109
  Serious: No
  Sender: FDA-Public Use
  Company Number: US-OPELLA-2023OHG010446

PATIENT

DRUGS (1)
  1. ASPERCREME WITH LIDOCAINE ESSENTIAL OILS ROSEMARY MINT [Suspect]
     Active Substance: LIDOCAINE
     Route: 065

REACTIONS (3)
  - Product quality issue [Unknown]
  - Product dispensing error [Unknown]
  - No adverse event [Unknown]
